FAERS Safety Report 8507443-5 (Version None)
Quarter: 2012Q3

REPORT INFORMATION
  Report Type: 
  Country: None (occurrence: None)
  Receive Date: 20120712
  Receipt Date: 20120706
  Transmission Date: 20120928
  Serious: Yes (Hospitalization)
  Sender: FDA-Public Use
  Company Number: US-BAYER-2012-017341

PATIENT
  Age: 30 Year
  Sex: Female
  Weight: 98.413 kg

DRUGS (14)
  1. YAZ [Suspect]
     Indication: PREMENSTRUAL SYNDROME
  2. YAZ [Suspect]
     Indication: ACNE
     Dosage: UNK
     Dates: start: 20090917, end: 20100220
  3. LORTAB [Concomitant]
     Dosage: UNK
     Dates: start: 20000101
  4. ALBUTEROL [Concomitant]
     Dosage: UNK
     Dates: start: 20000101
  5. OMEPRAZOLE MAGNESIUM [Concomitant]
     Dosage: UNK
     Dates: start: 20060101
  6. EXCEDRIN (MIGRAINE) [Concomitant]
     Dosage: UNK
     Dates: start: 20050101
  7. SYNTHROID [Concomitant]
     Dosage: UNK
     Dates: start: 19980101
  8. TRAZODONE HYDROCHLORIDE [Concomitant]
     Dosage: UNK
     Dates: start: 20100211, end: 20100214
  9. MIDRIN [Concomitant]
     Dosage: UNK
     Dates: start: 20050101
  10. METHOCARBAMOL [Concomitant]
     Dosage: UNK
     Dates: start: 20050101
  11. ESGIC-PLUS [Concomitant]
     Dosage: UNK
     Dates: start: 20050101
  12. GABAPENTIN [Concomitant]
     Dosage: UNK
     Dates: start: 20050101
  13. TAMSULOSIN HCL [Concomitant]
     Dosage: UNK
     Dates: start: 20100101
  14. TOPIRAMATE [Concomitant]
     Dosage: UNK
     Dates: start: 20050101

REACTIONS (5)
  - PULMONARY EMBOLISM [None]
  - PAIN [None]
  - CHEST PAIN [None]
  - DEEP VEIN THROMBOSIS [None]
  - MENTAL DISORDER [None]
